FAERS Safety Report 22239279 (Version 2)
Quarter: 2023Q2

REPORT INFORMATION
  Report Type: Spontaneous
  Country: IL (occurrence: IL)
  Receive Date: 20230421
  Receipt Date: 20230512
  Transmission Date: 20230722
  Serious: Yes (Death, Hospitalization, Other)
  Sender: FDA-Public Use
  Company Number: IL-GLAXOSMITHKLINE-IL2023EME057171

PATIENT

DRUGS (2)
  1. NUCALA [Suspect]
     Active Substance: MEPOLIZUMAB
     Indication: Asthma
     Dosage: UNK
     Dates: start: 202109
  2. NUCALA [Suspect]
     Active Substance: MEPOLIZUMAB
     Indication: Product used for unknown indication
     Dosage: UNK
     Dates: start: 202211

REACTIONS (9)
  - Cardiac arrest [Fatal]
  - Decreased immune responsiveness [Unknown]
  - Bacteraemia [Unknown]
  - Respiratory disorder [Unknown]
  - Neck pain [Unknown]
  - Hypoaesthesia [Unknown]
  - Condition aggravated [Unknown]
  - Sleep disorder due to a general medical condition [Unknown]
  - Therapy interrupted [Unknown]
